FAERS Safety Report 7602537 (Version 4)
Quarter: 2015Q4

REPORT INFORMATION
  Report Type: Spontaneous
  Country: US (occurrence: US)
  Receive Date: 20100923
  Receipt Date: 20151222
  Transmission Date: 20160305
  Serious: Yes (Hospitalization, Other)
  Sender: FDA-Public Use
  Company Number: US-BAYER-201034267NA

PATIENT
  Age: 44 Year
  Sex: Female
  Weight: 63.49 kg

DRUGS (6)
  1. YAZ [Suspect]
     Active Substance: DROSPIRENONE\ETHINYL ESTRADIOL
     Indication: PRODUCT USED FOR UNKNOWN INDICATION
     Route: 048
     Dates: start: 200910
  2. ASPIRIN. [Concomitant]
     Active Substance: ASPIRIN
  3. MELATONIN [Concomitant]
     Active Substance: MELATONIN
  4. PLAVIX [Concomitant]
     Active Substance: CLOPIDOGREL BISULFATE
  5. PROTONIX [Concomitant]
     Active Substance: PANTOPRAZOLE SODIUM
  6. ASCORBIC ACID. [Concomitant]
     Active Substance: ASCORBIC ACID

REACTIONS (3)
  - Ischaemic cerebral infarction [None]
  - Cerebrovascular accident [Unknown]
  - Embolism arterial [None]

NARRATIVE: CASE EVENT DATE: 20100503
